FAERS Safety Report 9191727 (Version 2)
Quarter: 2013Q4

REPORT INFORMATION
  Report Type: Spontaneous
  Country: FR (occurrence: FR)
  Receive Date: 20130326
  Receipt Date: 20131004
  Transmission Date: 20140711
  Serious: Yes (Hospitalization)
  Sender: FDA-Public Use
  Company Number: FR-ELI_LILLY_AND_COMPANY-FR201303006097

PATIENT
  Age: 70 Year
  Sex: Female

DRUGS (3)
  1. FORSTEO [Suspect]
     Indication: OSTEOPOROSIS
     Dosage: 20 UG, QD
     Route: 058
     Dates: start: 20130317, end: 20130317
  2. FORSTEO [Suspect]
     Dosage: UNK, UNKNOWN
     Route: 065
  3. FORSTEO [Suspect]
     Dosage: 20 UG, QD
     Dates: start: 20130320

REACTIONS (6)
  - Movement disorder [Unknown]
  - Headache [Unknown]
  - Vertigo [Recovered/Resolved]
  - Vomiting [Recovered/Resolved]
  - Muscle spasms [Recovered/Resolved]
  - Nausea [Recovered/Resolved]
